FAERS Safety Report 18334416 (Version 1)
Quarter: 2020Q3

REPORT INFORMATION
  Report Type: Spontaneous
  Country: US (occurrence: US)
  Receive Date: 20200930
  Receipt Date: 20200930
  Transmission Date: 20201103
  Serious: Yes (Hospitalization)
  Sender: FDA-Public Use
  Company Number: None

PATIENT
  Age: 64 Year
  Sex: Female
  Weight: 105.69 kg

DRUGS (8)
  1. ACYCLOVIR (ZOVIRAX) [Concomitant]
  2. TYLENOL [Concomitant]
     Active Substance: ACETAMINOPHEN
  3. DIFLUCAN [Concomitant]
     Active Substance: FLUCONAZOLE
  4. HYDROCHLOROTHIAZIDE (HYDRODIURIL) [Concomitant]
  5. PANTOPRAZOLE DR (PROTONIX) [Concomitant]
  6. FOLIC ACID (FOLVITE) [Concomitant]
  7. VYXEOS [Suspect]
     Active Substance: CYTARABINE\DAUNORUBICIN
     Indication: MYELODYSPLASTIC SYNDROME
     Dosage: ?          OTHER DOSE:29MG/M2;OTHER FREQUENCY:DAYS 1+3;?
     Route: 042
     Dates: start: 20200909, end: 20200911
  8. ZOFRAN [Concomitant]
     Active Substance: ONDANSETRON HYDROCHLORIDE

REACTIONS (5)
  - Platelet count decreased [None]
  - Stomatitis [None]
  - Haemoglobin decreased [None]
  - Haematochezia [None]
  - Oropharyngeal pain [None]

NARRATIVE: CASE EVENT DATE: 20200922
